FAERS Safety Report 6444043-5 (Version None)
Quarter: 2009Q4

REPORT INFORMATION
  Report Type: 
  Country: None (occurrence: None)
  Receive Date: 20091116
  Receipt Date: 20091116
  Transmission Date: 20100525
  Serious: Yes (Life-Threatening)
  Sender: FDA-Public Use
  Company Number: None

PATIENT
  Age: 38 Year
  Sex: Female
  Weight: 58.9676 kg

DRUGS (1)
  1. CHANTIX [Suspect]
     Indication: SMOKING CESSATION THERAPY
     Dates: start: 20090914, end: 20091001

REACTIONS (4)
  - AGGRESSION [None]
  - ALCOHOL USE [None]
  - IMPRISONMENT [None]
  - LOSS OF CONSCIOUSNESS [None]
